FAERS Safety Report 16277583 (Version 1)
Quarter: 2019Q2

REPORT INFORMATION
  Report Type: Other
  Country: CA (occurrence: CA)
  Receive Date: 20190506
  Receipt Date: 20190506
  Transmission Date: 20190711
  Serious: Yes (Other)
  Sender: FDA-Public Use
  Company Number: CA-PFIZER INC-2019187892

PATIENT
  Age: 53 Year
  Sex: Female

DRUGS (1)
  1. HYDROCHLOROTHIAZIDE/QUINAPRIL HYDROCHLORIDE [Suspect]
     Active Substance: HYDROCHLOROTHIAZIDE\QUINAPRIL HYDROCHLORIDE
     Dosage: UNK

REACTIONS (3)
  - Haemoptysis [Unknown]
  - Hypertension [Unknown]
  - Treatment noncompliance [Unknown]
